FAERS Safety Report 17083431 (Version 15)
Quarter: 2021Q2

REPORT INFORMATION
  Report Type: Spontaneous
  Country: US (occurrence: US)
  Receive Date: 20191127
  Receipt Date: 20210513
  Transmission Date: 20210716
  Serious: Yes (Hospitalization, Other)
  Sender: FDA-Public Use
  Company Number: US-SA-2019SA325211

PATIENT
  Age: 51 Year
  Sex: Female
  Weight: 64.85 kg

DRUGS (50)
  1. PROCHLORPERAZINE. [Concomitant]
     Active Substance: PROCHLORPERAZINE
     Dosage: 1 DF
     Route: 065
     Dates: start: 20190913
  2. PROCHLORPERAZINE. [Concomitant]
     Active Substance: PROCHLORPERAZINE
  3. HEPARIN [Concomitant]
     Active Substance: HEPARIN SODIUM
     Dosage: 100 UNITS/ ML
     Route: 042
     Dates: start: 20190727
  4. HEPARIN [Concomitant]
     Active Substance: HEPARIN SODIUM
  5. SODIUM CHLORIDE. [Concomitant]
     Active Substance: SODIUM CHLORIDE
     Dosage: 0.9 %
     Route: 042
     Dates: start: 20190727
  6. MIRALAX [Concomitant]
     Active Substance: POLYETHYLENE GLYCOL 3350
  7. HYDROXYZINE [Concomitant]
     Active Substance: HYDROXYZINE HYDROCHLORIDE
     Dosage: UNK
  8. STERILE WATER [Concomitant]
     Active Substance: WATER
     Dosage: 13 ML
     Route: 042
     Dates: start: 20190727
  9. MAGNESIUM [Concomitant]
     Active Substance: MAGNESIUM
     Dosage: 1 DF, QD
     Route: 048
     Dates: start: 20190710
  10. TACROLIMUS. [Concomitant]
     Active Substance: TACROLIMUS
     Dosage: 3 DF, BID
     Route: 048
     Dates: start: 20181201
  11. ESTROGEL [Concomitant]
     Active Substance: ESTRADIOL
     Dosage: 1 DF, QD
     Route: 061
     Dates: start: 20181127
  12. VENTOLINE [SALBUTAMOL] [Concomitant]
     Active Substance: ALBUTEROL SULFATE
  13. DULCOLAX (BISACODYL) [Concomitant]
     Active Substance: BISACODYL
  14. BACLOFEN. [Concomitant]
     Active Substance: BACLOFEN
     Route: 065
  15. BACLOFEN. [Concomitant]
     Active Substance: BACLOFEN
  16. BENADRYL [Concomitant]
     Active Substance: DIPHENHYDRAMINE HYDROCHLORIDE
     Dosage: UNK
  17. NIFEDIPINE. [Concomitant]
     Active Substance: NIFEDIPINE
  18. DIPHENHYDRAMINE. [Concomitant]
     Active Substance: DIPHENHYDRAMINE
  19. FABRAZYME [Suspect]
     Active Substance: AGALSIDASE BETA
     Indication: RENAL TRANSPLANT
     Dosage: 0.97 MG/KG, QOW (65 MG EVER TWO WEEKS)
     Route: 042
  20. FLUBLOK QUADRIVALENT NOS [Concomitant]
     Active Substance: INFLUENZA VIRUS VACCINE
     Dosage: 1 DF
     Route: 030
     Dates: start: 20191014
  21. NORMAL SALINE [Concomitant]
     Active Substance: SODIUM CHLORIDE
  22. EPINEPHRINE. [Concomitant]
     Active Substance: EPINEPHRINE
     Indication: ANAPHYLACTIC REACTION
     Dosage: 0.3 MG, PRN
     Route: 030
     Dates: start: 20190727
  23. FUROSEMIDE. [Concomitant]
     Active Substance: FUROSEMIDE
     Dosage: 1 DF, QD
     Route: 048
     Dates: start: 20190228
  24. CALCITRIOL. [Concomitant]
     Active Substance: CALCITRIOL
     Dosage: 1 DF, QD
     Route: 048
     Dates: start: 20180723
  25. DULCOLAX (BISACODYL) [Concomitant]
     Active Substance: BISACODYL
     Indication: SINUSITIS
     Route: 065
  26. FABRAZYME [Suspect]
     Active Substance: AGALSIDASE BETA
     Indication: FABRY^S DISEASE
     Dosage: 1 MG/KG (65MG), QOW
     Route: 042
     Dates: start: 20070323
  27. CYCLOBENZAPRINE HCL [Concomitant]
     Active Substance: CYCLOBENZAPRINE HYDROCHLORIDE
     Dosage: 1 DF, HS
     Route: 048
     Dates: start: 20190223
  28. SODIUM BICARBONATE. [Concomitant]
     Active Substance: SODIUM BICARBONATE
  29. ZOFRAN [Concomitant]
     Active Substance: ONDANSETRON HYDROCHLORIDE
     Dosage: 1 DF
     Route: 065
     Dates: start: 20180621
  30. ZOFRAN [Concomitant]
     Active Substance: ONDANSETRON HYDROCHLORIDE
  31. PROGESTERONE. [Concomitant]
     Active Substance: PROGESTERONE
  32. MECLIZINE [MECLOZINE HYDROCHLORIDE] [Concomitant]
     Active Substance: MECLIZINE HYDROCHLORIDE
  33. BENADRYL [Concomitant]
     Active Substance: DIPHENHYDRAMINE HYDROCHLORIDE
  34. HYDROXYZINE [Concomitant]
     Active Substance: HYDROXYZINE HYDROCHLORIDE
  35. VITAMIN D3 [Concomitant]
     Active Substance: CHOLECALCIFEROL
     Dosage: 1 DF, QD
     Route: 048
     Dates: start: 20190710
  36. PROCARDIA [Concomitant]
     Active Substance: NIFEDIPINE
     Dosage: 1 DF, QD
     Route: 048
     Dates: start: 20180724
  37. MACROBID [CLARITHROMYCIN] [Concomitant]
     Active Substance: CLARITHROMYCIN
  38. FLUBLOK [Concomitant]
     Active Substance: INFLUENZA A VIRUS A/CALIFORNIA/7/2009 (H1N1) RECOMBINANT HEMAGGLUTININ ANTIGEN\INFLUENZA A VIRUS A/VICTORIA/361/2011 (H3N2) RECOMBINANT HEMAGGLUTININ ANTIGEN\INFLUENZA B VIRUS B/WISCONSIN/1/2010 RECOMBINANT HEMAGGLUTININ ANTIGEN
     Route: 065
  39. LIDOCAINE/PRILOCAINE [Concomitant]
     Active Substance: LIDOCAINE\PRILOCAINE
     Dosage: 2.5 %, PRN
     Route: 061
     Dates: start: 20190727
  40. NORMAL SALINE [Concomitant]
     Active Substance: SODIUM CHLORIDE
     Dosage: 0.9 %
     Route: 042
     Dates: start: 20190727
  41. EPINEPHRINE. [Concomitant]
     Active Substance: EPINEPHRINE
  42. ACETAMINOPHEN. [Concomitant]
     Active Substance: ACETAMINOPHEN
  43. VANCOMYCIN [Concomitant]
     Active Substance: VANCOMYCIN
     Dosage: UNK
  44. FUROSEMIDE. [Concomitant]
     Active Substance: FUROSEMIDE
  45. SODIUM BICARBONATE. [Concomitant]
     Active Substance: SODIUM BICARBONATE
     Dosage: 1 DF, QD
     Route: 048
     Dates: start: 20181201
  46. VENTOLINE [SALBUTAMOL] [Concomitant]
     Active Substance: ALBUTEROL SULFATE
  47. NIFEDIPINE. [Concomitant]
     Active Substance: NIFEDIPINE
     Dosage: UNK
  48. VITAMIN D3 [Concomitant]
     Active Substance: CHOLECALCIFEROL
  49. CALCITRIOL. [Concomitant]
     Active Substance: CALCITRIOL
  50. PROGESTERONE. [Concomitant]
     Active Substance: PROGESTERONE
     Dosage: 1 DF, QD
     Route: 048
     Dates: start: 20180501

REACTIONS (33)
  - Renal disorder [Unknown]
  - Chills [Unknown]
  - Pruritus [Unknown]
  - Cough [Unknown]
  - Joint injury [Unknown]
  - Malaise [Unknown]
  - Fatigue [Unknown]
  - Catheter removal [Unknown]
  - Catheter site haemorrhage [Unknown]
  - Joint swelling [Unknown]
  - Headache [Unknown]
  - Pleural effusion [Unknown]
  - Blood creatinine abnormal [Unknown]
  - International normalised ratio increased [Unknown]
  - Hypertension [Unknown]
  - Dyspnoea [Unknown]
  - Thrombosis [Unknown]
  - Abdominal discomfort [Unknown]
  - Paranasal sinus discomfort [Unknown]
  - Anaemia [Unknown]
  - Catheter site erythema [Unknown]
  - Catheter site pain [Unknown]
  - Catheter site bruise [Unknown]
  - Swelling face [Unknown]
  - Product dose omission issue [Unknown]
  - Off label use [Unknown]
  - Device related infection [Unknown]
  - Catheter site swelling [Unknown]
  - Prothrombin time prolonged [Unknown]
  - Dizziness [Unknown]
  - Vomiting [Unknown]
  - Chest pain [Unknown]
  - Catheter placement [Unknown]

NARRATIVE: CASE EVENT DATE: 20201009
